FAERS Safety Report 19231124 (Version 4)
Quarter: 2023Q1

REPORT INFORMATION
  Report Type: Spontaneous
  Country: JP (occurrence: JP)
  Receive Date: 20210507
  Receipt Date: 20230219
  Transmission Date: 20230417
  Serious: Yes (Hospitalization)
  Sender: FDA-Public Use
  Company Number: JP-BRISTOL-MYERS SQUIBB COMPANY-BMS-2021-044313

PATIENT
  Sex: Male

DRUGS (4)
  1. TRIAMCINOLONE ACETONIDE [Suspect]
     Active Substance: TRIAMCINOLONE ACETONIDE
     Indication: Product used for unknown indication
     Dosage: UNK
  2. ROCAIN ALFRESA [Concomitant]
     Indication: Product used for unknown indication
     Dosage: ??
  3. LIDOCAINE [Concomitant]
     Active Substance: LIDOCAINE
     Indication: Product used for unknown indication
     Dosage: ??
  4. HYALURONATE SODIUM [Concomitant]
     Active Substance: HYALURONATE SODIUM
     Indication: Product used for unknown indication
     Dosage: ??

REACTIONS (8)
  - Eye pain [Not Recovered/Not Resolved]
  - Visual field defect [Not Recovered/Not Resolved]
  - Pain in jaw [Unknown]
  - Visual acuity reduced [Unknown]
  - Malocclusion [Unknown]
  - Arthralgia [Unknown]
  - Pain [Unknown]
  - Pollakiuria [Unknown]

NARRATIVE: CASE EVENT DATE: 20210118
